FAERS Safety Report 10254091 (Version 3)
Quarter: 2017Q3

REPORT INFORMATION
  Report Type: Spontaneous
  Country: US (occurrence: US)
  Receive Date: 20140623
  Receipt Date: 20170818
  Transmission Date: 20171127
  Serious: Yes (Other)
  Sender: FDA-Public Use
  Company Number: US-JNJFOC-20140612077

PATIENT
  Sex: Female

DRUGS (1)
  1. BENGAY ARTHRITIS PAIN RELIEVING [Suspect]
     Active Substance: MENTHOL\METHYL SALICYLATE
     Indication: PRODUCT USED FOR UNKNOWN INDICATION
     Route: 061

REACTIONS (2)
  - Burns third degree [Unknown]
  - Burns second degree [Unknown]
